FAERS Safety Report 16918479 (Version 2)
Quarter: 2019Q4

REPORT INFORMATION
  Report Type: Spontaneous
  Country: FR (occurrence: FR)
  Receive Date: 20191015
  Receipt Date: 20191121
  Transmission Date: 20200122
  Serious: Yes (Hospitalization)
  Sender: FDA-Public Use
  Company Number: FR-PFIZER INC-2019435749

PATIENT
  Age: 25 Year
  Sex: Male
  Weight: 65 kg

DRUGS (28)
  1. SODIUM CHLORIDE BIOSEDRA [Suspect]
     Active Substance: SODIUM CHLORIDE
     Indication: SUICIDE ATTEMPT
     Dosage: 1519 ML, UNK
     Route: 042
     Dates: start: 20190820, end: 20190823
  2. GLUCOSE [Suspect]
     Active Substance: DEXTROSE
     Dosage: 390 ML, 1X/DAY
     Route: 042
     Dates: start: 20190823, end: 20190823
  3. POTASSIUM CHLORIDE. [Suspect]
     Active Substance: POTASSIUM CHLORIDE
     Indication: SUICIDE ATTEMPT
     Dosage: 31.75 MG, UNK
     Route: 042
     Dates: start: 20190820, end: 20190823
  4. LOVENOX [Suspect]
     Active Substance: ENOXAPARIN SODIUM
     Indication: SUICIDE ATTEMPT
     Dosage: 1 DF, UNK
     Route: 058
     Dates: start: 20190820, end: 20190822
  5. CERNEVIT [Suspect]
     Active Substance: VITAMINS
     Indication: SUICIDE ATTEMPT
     Dosage: 1 L, UNK
     Route: 042
     Dates: start: 20190821, end: 20190823
  6. GLUCOSE [Suspect]
     Active Substance: DEXTROSE
     Indication: SUICIDE ATTEMPT
     Dosage: 3400 ML, UNK
     Route: 042
     Dates: start: 20190820, end: 20190823
  7. GLYPRESSINE [Suspect]
     Active Substance: TERLIPRESSIN
     Indication: SUICIDE ATTEMPT
     Dosage: 143 MG, UNK
     Route: 042
     Dates: start: 20190820, end: 20190821
  8. THERALENE [Concomitant]
     Active Substance: TRIMEPRAZINE
     Indication: DEPRESSION
     Dosage: 25 GTT, UNK
     Route: 048
  9. NIMBEX [NIMESULIDE] [Suspect]
     Active Substance: NIMESULIDE
     Indication: SUICIDE ATTEMPT
     Dosage: 125 MG, UNK
     Route: 042
     Dates: start: 20190820, end: 20190821
  10. WATER FOR INJECTION [Suspect]
     Active Substance: WATER
     Indication: SUICIDE ATTEMPT
     Dosage: 1453 ML, UNK
     Route: 042
     Dates: start: 20190820, end: 20190823
  11. CALCIUM CHLORIDE. [Suspect]
     Active Substance: CALCIUM CHLORIDE
     Indication: SUICIDE ATTEMPT
     Dosage: UNK
     Route: 042
     Dates: start: 20190820, end: 20190823
  12. SODIUM BICARBONATE. [Suspect]
     Active Substance: SODIUM BICARBONATE
     Indication: SUICIDE ATTEMPT
     Dosage: UNK
     Route: 042
     Dates: start: 20190820
  13. PAROXETINE. [Concomitant]
     Active Substance: PAROXETINE
     Indication: DEPRESSION
     Dosage: 20 MG, 1X/DAY
     Route: 048
     Dates: start: 20190715
  14. ACTIVATED CHARCOAL. [Concomitant]
     Active Substance: ACTIVATED CHARCOAL
     Indication: SUICIDE ATTEMPT
     Dosage: 200 G, UNK
     Route: 048
     Dates: start: 20190820, end: 20190821
  15. NORADRENALINE HOSPIRA [Suspect]
     Active Substance: NOREPINEPHRINE BITARTRATE
     Indication: SUICIDE ATTEMPT
     Dosage: UNK
     Route: 042
     Dates: start: 20190820, end: 20190822
  16. TERLIPRESSIN ACETATE [Suspect]
     Active Substance: TERLIPRESSIN
     Indication: SUICIDE ATTEMPT
     Dosage: UNK
     Route: 042
     Dates: start: 20190820
  17. INTRALIPIDE [Suspect]
     Active Substance: SOYBEAN OIL
     Indication: TOXICITY TO VARIOUS AGENTS
     Dosage: UNK
     Route: 042
     Dates: start: 20190820, end: 20190823
  18. GLUCOSE [Suspect]
     Active Substance: DEXTROSE
     Dosage: 4420 ML, UNK
     Route: 042
     Dates: start: 20190820, end: 20190822
  19. HYPNOVEL [MIDAZOLAM HYDROCHLORIDE] [Suspect]
     Active Substance: MIDAZOLAM HYDROCHLORIDE
     Indication: SUICIDE ATTEMPT
     Dosage: 137 KIU, UNK
     Route: 042
     Dates: start: 20190821, end: 20190822
  20. POLYETHYLENE GLYCOL [Suspect]
     Active Substance: POLYETHYLENE GLYCOLS
     Indication: SUICIDE ATTEMPT
     Dosage: 3 L, 1X/DAY
     Route: 042
     Dates: start: 20190821, end: 20190821
  21. QUETIAPINE. [Concomitant]
     Active Substance: QUETIAPINE
     Indication: DEPRESSION
     Dosage: 800 MG, 1X/DAY
     Route: 048
     Dates: start: 20190718
  22. OLIMEL [Concomitant]
     Active Substance: AMINO ACIDS\DEXTROSE\SOYBEAN OIL
     Indication: SUICIDE ATTEMPT
     Dosage: 431 ML, UNK
     Route: 042
     Dates: start: 20190821, end: 20190822
  23. LORMETAZEPAM [Concomitant]
     Active Substance: LORMETAZEPAM
     Indication: DEPRESSION
     Dosage: 2 MG, 1X/DAY
     Route: 048
     Dates: start: 20190714
  24. ESMERON [Suspect]
     Active Substance: ROCURONIUM BROMIDE
     Indication: SUICIDE ATTEMPT
     Dosage: 70 MG, 1X/DAY
     Route: 042
     Dates: start: 20190820, end: 20190820
  25. ACTRAPID [Suspect]
     Active Substance: INSULIN HUMAN
     Indication: SUICIDE ATTEMPT
     Dosage: 2960 IU, UNK
     Route: 042
     Dates: start: 20190820, end: 20190821
  26. FENTANYL. [Suspect]
     Active Substance: FENTANYL
     Indication: SUICIDE ATTEMPT
     Dosage: 2500 UG, UNK
     Route: 042
     Dates: start: 20190821, end: 20190822
  27. TERCIAN [CYAMEMAZINE TARTRATE] [Concomitant]
     Active Substance: CYAMEMAZINE
     Indication: DEPRESSION
     Dosage: 1 DF, UNK
     Route: 048
     Dates: start: 20190830
  28. AMLODIPINE [Concomitant]
     Active Substance: AMLODIPINE BESYLATE
     Indication: HYPERTENSION
     Dosage: 5 MG, 1X/DAY
     Route: 048

REACTIONS (2)
  - Intentional product misuse [Unknown]
  - Thrombophlebitis superficial [Recovered/Resolved]

NARRATIVE: CASE EVENT DATE: 20190820
